FAERS Safety Report 7793694-4 (Version None)
Quarter: 2011Q4

REPORT INFORMATION
  Report Type: 
  Country: None (occurrence: None)
  Receive Date: 20111003
  Receipt Date: 20110930
  Transmission Date: 20120403
  Serious: Yes (Death)
  Sender: FDA-Public Use
  Company Number: JP-B.I. PHARMACEUTICALS,INC./RIDGEFIELD-2011-BP-23150NB

PATIENT
  Age: 89 Year
  Sex: Male
  Weight: 54.4 kg

DRUGS (11)
  1. CLEANAL [Concomitant]
     Dosage: 3 ANZ
     Route: 065
     Dates: start: 20110921
  2. LASIX [Concomitant]
     Dosage: 1 ANZ
     Route: 065
     Dates: start: 20110927
  3. TRICHLORMETHIAZIDE [Concomitant]
     Dosage: 0.5 ANZ
     Route: 065
     Dates: start: 20110927
  4. ASPIRIN [Concomitant]
     Dosage: 100 MG
     Route: 048
  5. SLOW-K [Concomitant]
     Dosage: 1200 MG
     Route: 048
     Dates: start: 20110922, end: 20110929
  6. RABEPRAZOLE SODIUM [Concomitant]
     Dosage: 10 MG
     Route: 048
  7. HOKUNALIN:TAPE [Concomitant]
     Dosage: 2 MG
     Route: 062
     Dates: start: 20110921
  8. PRADAXA [Suspect]
     Indication: ATRIAL FIBRILLATION
     Dosage: 220 MG
     Route: 048
     Dates: start: 20110925, end: 20110929
  9. TORSEMIDE [Concomitant]
     Dosage: 1 ANZ
     Route: 065
  10. LAC-B [Concomitant]
     Dosage: 4 G
     Route: 065
     Dates: start: 20110921
  11. DIGOXIN [Concomitant]
     Dosage: 0.125 MG
     Route: 048
     Dates: start: 20110928, end: 20110929

REACTIONS (1)
  - MULTI-ORGAN FAILURE [None]
